FAERS Safety Report 7009797-8 (Version None)
Quarter: 2010Q3

REPORT INFORMATION
  Report Type: 
  Country: None (occurrence: None)
  Receive Date: 20100923
  Receipt Date: 20100916
  Transmission Date: 20110219
  Serious: Yes (Other)
  Sender: FDA-Public Use
  Company Number: JP-ROCHE-703058

PATIENT
  Age: 74 Year
  Sex: Male

DRUGS (2)
  1. AVASTIN [Suspect]
     Route: 047
  2. ANTIDIABETIC DRUG NOS [Concomitant]
     Dosage: PERORAL AGENT
     Route: 048

REACTIONS (1)
  - MACULAR ISCHAEMIA [None]
